FAERS Safety Report 14030218 (Version 1)
Quarter: 2017Q4

REPORT INFORMATION
  Report Type: Spontaneous
  Country: DE (occurrence: DE)
  Receive Date: 20171001
  Receipt Date: 20171001
  Transmission Date: 20180321
  Serious: Yes (Hospitalization)
  Sender: FDA-Public Use
  Company Number: DE-AMGEN-DEUSP2017147461

PATIENT
  Age: 59 Year
  Sex: Female

DRUGS (2)
  1. CORTISON [Concomitant]
     Active Substance: CORTISONE ACETATE
     Dosage: 7.5 MG, UNK
  2. ENBREL [Suspect]
     Active Substance: ETANERCEPT
     Indication: RHEUMATOID ARTHRITIS
     Dosage: 25 MG, 2X/WEEK
     Route: 065
     Dates: start: 20140801

REACTIONS (1)
  - Pain in extremity [Not Recovered/Not Resolved]
